FAERS Safety Report 15725687 (Version 1)
Quarter: 2018Q4

REPORT INFORMATION
  Report Type: Spontaneous
  Country: US (occurrence: US)
  Receive Date: 20181215
  Receipt Date: 20181215
  Transmission Date: 20190205
  Serious: No
  Sender: FDA-Public Use
  Company Number: US-JNJFOC-20181131532

PATIENT
  Age: 80 Year
  Sex: Male
  Weight: 102.06 kg

DRUGS (1)
  1. TYLENOL REGULAR STRENGTH [Suspect]
     Active Substance: ACETAMINOPHEN
     Indication: PAIN
     Dosage: 1 TABLET AT A TIME, EVERY FEW DAYS
     Route: 048

REACTIONS (2)
  - Incorrect dose administered [Unknown]
  - Blood pressure decreased [Recovered/Resolved]
